FAERS Safety Report 21266703 (Version 1)
Quarter: 2022Q3

REPORT INFORMATION
  Report Type: Spontaneous
  Country: US (occurrence: None)
  Receive Date: 20220826
  Receipt Date: 20220826
  Transmission Date: 20221026
  Serious: Yes (Other)
  Sender: FDA-Public Use
  Company Number: None

PATIENT
  Age: 58 Year
  Sex: Female

DRUGS (19)
  1. AMBRISENTAN [Suspect]
     Active Substance: AMBRISENTAN
     Indication: Pulmonary arterial hypertension
     Dosage: FREQUENCY : DAILY;?
     Route: 048
     Dates: start: 20140725
  2. TADALAFIL [Concomitant]
     Active Substance: TADALAFIL
  3. K-TAB [Concomitant]
     Active Substance: POTASSIUM CHLORIDE
  4. LASIX [Concomitant]
     Active Substance: FUROSEMIDE
  5. NORCO [Concomitant]
     Active Substance: ACETAMINOPHEN\HYDROCODONE BITARTRATE
  6. ALBUTEROL SULFATE [Concomitant]
     Active Substance: ALBUTEROL SULFATE
  7. ZOLPIDEM [Concomitant]
     Active Substance: ZOLPIDEM TARTRATE
  8. MAGNESIUM OXIDE [Concomitant]
     Active Substance: MAGNESIUM OXIDE
  9. OMEPRAZOLE [Concomitant]
     Active Substance: OMEPRAZOLE
  10. SIMVASTATIN [Concomitant]
     Active Substance: SIMVASTATIN
  11. METHOCARBARMOL [Concomitant]
  12. NARCAN [Concomitant]
     Active Substance: NALOXONE HYDROCHLORIDE
  13. METOLAZONE [Concomitant]
     Active Substance: METOLAZONE
  14. GLIPIZIDE [Concomitant]
     Active Substance: GLIPIZIDE
  15. COLCHICINE [Concomitant]
     Active Substance: COLCHICINE
  16. INSPRA [Concomitant]
     Active Substance: EPLERENONE
  17. IPRATROPIUM [Concomitant]
     Active Substance: IPRATROPIUM
  18. HYDROXYCHLOROQUINE [Concomitant]
     Active Substance: HYDROXYCHLOROQUINE
  19. IMITREX [Concomitant]
     Active Substance: SUMATRIPTAN SUCCINATE

REACTIONS (5)
  - Cellulitis [None]
  - Arthralgia [None]
  - Joint swelling [None]
  - Systemic lupus erythematosus [None]
  - Gout [None]

NARRATIVE: CASE EVENT DATE: 20220820
